FAERS Safety Report 18547373 (Version 1)
Quarter: 2020Q4

REPORT INFORMATION
  Report Type: Spontaneous
  Country: US (occurrence: US)
  Receive Date: 20201126
  Receipt Date: 20201126
  Transmission Date: 20210114
  Serious: Yes (Other)
  Sender: FDA-Public Use
  Company Number: US-LEADINGPHARMA-US-2020LEALIT00168

PATIENT
  Age: 29 Year
  Sex: Female

DRUGS (4)
  1. IMMUNOGLOBULIN I.V [Interacting]
     Active Substance: HUMAN IMMUNOGLOBULIN G
     Indication: AUTOIMMUNE HAEMOLYTIC ANAEMIA
     Route: 042
  2. FUROSEMIDE TABLETS USP [Suspect]
     Active Substance: FUROSEMIDE
     Indication: PERIPHERAL SWELLING
     Route: 065
  3. PREDNISONE. [Interacting]
     Active Substance: PREDNISONE
     Indication: LIVER DISORDER
  4. PREDNISONE. [Interacting]
     Active Substance: PREDNISONE
     Indication: DRUG REACTION WITH EOSINOPHILIA AND SYSTEMIC SYMPTOMS
     Route: 048

REACTIONS (3)
  - Drug reaction with eosinophilia and systemic symptoms [Recovering/Resolving]
  - Hepatic function abnormal [Recovering/Resolving]
  - Autoimmune haemolytic anaemia [Recovered/Resolved]
